FAERS Safety Report 25497008 (Version 1)
Quarter: 2025Q3

REPORT INFORMATION
  Report Type: Spontaneous
  Country: US (occurrence: US)
  Receive Date: 20250701
  Receipt Date: 20250701
  Transmission Date: 20251020
  Serious: No
  Sender: ROCHE
  Company Number: US-ROCHE-10000321995

PATIENT
  Sex: Male

DRUGS (6)
  1. ACTEMRA ACTPEN [Suspect]
     Active Substance: TOCILIZUMAB
     Indication: Rheumatoid arthritis
     Route: 058
  2. Calcium tab 500 mg [Concomitant]
  3. losartan pot tab 50 mg [Concomitant]
  4. METFORMIN HYDROCHLORIDE [Concomitant]
     Active Substance: METFORMIN HYDROCHLORIDE
  5. simvastatin tab 10 mg [Concomitant]
  6. Trulicity sop 1.5 mg/0.5 ml [Concomitant]

REACTIONS (1)
  - Inflammation [Not Recovered/Not Resolved]
